FAERS Safety Report 24147969 (Version 1)
Quarter: 2024Q3

REPORT INFORMATION
  Report Type: Spontaneous
  Country: BR (occurrence: BR)
  Receive Date: 20240729
  Receipt Date: 20240729
  Transmission Date: 20241016
  Serious: Yes (Hospitalization)
  Sender: TEVA
  Company Number: BR-TEVA-VS-3224791

PATIENT
  Age: 42 Year
  Sex: Male

DRUGS (1)
  1. OXALIPLATIN [Suspect]
     Active Substance: OXALIPLATIN
     Indication: Product used for unknown indication
     Route: 065
     Dates: start: 20240715, end: 20240715

REACTIONS (6)
  - Tremor [Unknown]
  - Tachycardia [Unknown]
  - Pain in extremity [Unknown]
  - Chills [Unknown]
  - Thirst [Unknown]
  - Cyanosis [Unknown]

NARRATIVE: CASE EVENT DATE: 20240715
